FAERS Safety Report 8468737 (Version 11)
Quarter: 2014Q2

REPORT INFORMATION
  Report Type: Spontaneous
  Country: US (occurrence: US)
  Receive Date: 20120320
  Receipt Date: 20140522
  Transmission Date: 20141212
  Serious: Yes (Hospitalization, Disabling, Other)
  Sender: FDA-Public Use
  Company Number: US-ASTRAZENECA-2011SE32269

PATIENT
  Age: 64 Year
  Sex: Female
  Weight: 62.6 kg

DRUGS (79)
  1. NEXIUM [Suspect]
     Indication: GASTROOESOPHAGEAL REFLUX DISEASE
     Route: 048
     Dates: start: 200101, end: 200502
  2. NEXIUM [Suspect]
     Indication: GASTROOESOPHAGEAL REFLUX DISEASE
     Route: 048
     Dates: start: 2002, end: 2009
  3. NEXIUM [Suspect]
     Indication: GASTROOESOPHAGEAL REFLUX DISEASE
     Dosage: ONCE A DAY EVERYDAY
     Route: 048
     Dates: start: 2004, end: 2008
  4. NEXIUM [Suspect]
     Indication: GASTROOESOPHAGEAL REFLUX DISEASE
     Route: 048
     Dates: start: 20060925
  5. NEXIUM [Suspect]
     Indication: GASTROOESOPHAGEAL REFLUX DISEASE
     Route: 048
     Dates: start: 20060126
  6. NEXIUM [Suspect]
     Indication: GASTROOESOPHAGEAL REFLUX DISEASE
     Route: 048
     Dates: start: 20050604
  7. TUMS [Concomitant]
     Indication: DYSPEPSIA
  8. MILK OF MAGNESIA [Concomitant]
  9. MEDROL DOSEPAK [Concomitant]
     Indication: LOCAL SWELLING
     Dates: start: 2003
  10. MEDROL DOSEPAK [Concomitant]
     Indication: JOINT SWELLING
     Dates: start: 2003
  11. CLONAZEPAM/KLONOPIN [Concomitant]
     Dates: start: 19961227
  12. CLONAZEPAM/KLONOPIN [Concomitant]
     Dates: start: 20021105
  13. CLONAZEPAM/KLONOPIN [Concomitant]
     Dates: start: 20030411
  14. CLONAZEPAM/KLONOPIN [Concomitant]
     Dosage: 0.5 MG 1 HS AND PRN
     Dates: start: 20060925
  15. CLONAZEPAM/KLONOPIN [Concomitant]
     Dates: start: 20080317
  16. CLONAZEPAM/KLONOPIN [Concomitant]
     Route: 048
     Dates: start: 201004
  17. LASIX [Concomitant]
     Indication: DIURETIC THERAPY
     Dates: start: 19961227
  18. LASIX [Concomitant]
     Indication: SLEEP DISORDER
     Dates: start: 19961227
  19. LASIX [Concomitant]
     Indication: DIURETIC THERAPY
     Dates: start: 20021105
  20. LASIX [Concomitant]
     Indication: SLEEP DISORDER
     Dates: start: 20021105
  21. LASIX [Concomitant]
     Indication: DIURETIC THERAPY
     Dates: start: 20080317
  22. LASIX [Concomitant]
     Indication: SLEEP DISORDER
     Dates: start: 20080317
  23. LASIX [Concomitant]
     Indication: DIURETIC THERAPY
     Route: 048
     Dates: start: 201004
  24. LASIX [Concomitant]
     Indication: SLEEP DISORDER
     Route: 048
     Dates: start: 201004
  25. SPIRONOLACTONE/ALDACTONE [Concomitant]
     Dates: start: 19961227
  26. SPIRONOLACTONE/ALDACTONE [Concomitant]
     Dates: start: 20021105
  27. SPIRONOLACTONE/ALDACTONE [Concomitant]
     Dates: start: 20060925
  28. SPIRONOLACTONE/ALDACTONE [Concomitant]
     Dates: start: 20080317
  29. SPIRONOLACTONE/ALDACTONE [Concomitant]
     Route: 048
     Dates: start: 201004
  30. SYNTHROID/LEVOTHYROXINE [Concomitant]
     Indication: THYROID DISORDER
     Dates: start: 19961227
  31. SYNTHROID/LEVOTHYROXINE [Concomitant]
     Indication: THYROID DISORDER
     Dates: start: 20021105
  32. SYNTHROID/LEVOTHYROXINE [Concomitant]
     Indication: THYROID DISORDER
     Dates: start: 20060925
  33. SYNTHROID/LEVOTHYROXINE [Concomitant]
     Indication: THYROID DISORDER
     Dates: start: 20080317
  34. SYNTHROID/LEVOTHYROXINE [Concomitant]
     Indication: THYROID DISORDER
     Route: 048
     Dates: start: 201004
  35. SYNTHROID/LEVOTHYROXINE [Concomitant]
     Indication: THYROID DISORDER
     Route: 048
  36. ACTIGALL/URSODIOL [Concomitant]
     Dates: start: 20060925
  37. ACTIGALL/URSODIOL [Concomitant]
     Dates: start: 20080317
  38. ACTIGALL/URSODIOL [Concomitant]
     Dates: start: 20021105
  39. ACTIGALL/URSODIOL [Concomitant]
     Route: 048
     Dates: start: 201004
  40. ESTRACE/ESTRADIOL [Concomitant]
     Dates: start: 20021105
  41. ESTRACE/ESTRADIOL [Concomitant]
     Dates: start: 20080317
  42. ESTRACE/ESTRADIOL [Concomitant]
     Route: 048
     Dates: start: 201004
  43. PREMARIN [Concomitant]
     Dates: start: 19961227
  44. PREMARIN [Concomitant]
     Dates: start: 20060925
  45. LEXAPRO [Concomitant]
     Dates: start: 20060925
  46. ZETIA [Concomitant]
     Dates: start: 20060925
  47. FOSAMAX [Concomitant]
     Dosage: 70 MG PER WEEK
     Dates: start: 20060925
  48. AMITRIPTYLINE/ELAVIL [Concomitant]
     Indication: SLEEP DISORDER
     Dates: start: 19961227
  49. AMITRIPTYLINE/ELAVIL [Concomitant]
     Indication: SLEEP DISORDER
     Dates: start: 20020205
  50. AMITRIPTYLINE/ELAVIL [Concomitant]
     Indication: SLEEP DISORDER
     Dates: start: 20060925
  51. AMITRIPTYLINE/ELAVIL [Concomitant]
     Indication: SLEEP DISORDER
     Dates: start: 20060925
  52. AMITRIPTYLINE/ELAVIL [Concomitant]
     Indication: SLEEP DISORDER
     Route: 048
     Dates: start: 201004
  53. PROVERA [Concomitant]
     Dosage: 10 MG FROM FIRST THROUGH THE TENTH DAY OF THE MONTH
     Dates: start: 19961227
  54. PREVACID [Concomitant]
     Dates: start: 19961227
  55. PRILOSEC [Concomitant]
     Dates: start: 20021217
  56. PRILOSEC [Concomitant]
     Dates: start: 20030507
  57. ACTONEL [Concomitant]
     Dates: start: 20021223
  58. PAXIL [Concomitant]
     Dates: start: 20021230
  59. XENICAL [Concomitant]
     Dates: start: 20030211
  60. CLINDAMYCIN [Concomitant]
     Indication: SINUSITIS
     Dates: start: 20021105
  61. CLARITIN [Concomitant]
     Dates: start: 20021105
  62. ZAROXOLYN [Concomitant]
     Dates: start: 20021105
  63. CELEBREX [Concomitant]
     Route: 048
     Dates: start: 20021105
  64. CELEBREX [Concomitant]
     Dates: start: 20010710
  65. FLEXERIL [Concomitant]
     Dates: start: 20021105
  66. PROTONIX [Concomitant]
     Dates: start: 20021105
  67. MAG-OX [Concomitant]
     Route: 048
     Dates: start: 201004
  68. ZOCOR [Concomitant]
     Route: 048
     Dates: start: 201004
  69. RESTORIL [Concomitant]
     Route: 048
     Dates: start: 201004
  70. QUESTRAN [Concomitant]
     Route: 048
     Dates: start: 201004
  71. NORCO [Concomitant]
     Dosage: 5 AND 325 MG TAKE 1 TO 2
  72. DARVOCET [Concomitant]
  73. PROMETHAZINE HCL [Concomitant]
     Dosage: 1 TABLET 6-8 HRS AE PER NEED POST NAUSEA
  74. MOBIC [Concomitant]
     Route: 048
  75. CLINORIL [Concomitant]
  76. TRAMADOL [Concomitant]
     Route: 048
     Dates: start: 20050823
  77. CYCLOBENZAPRINE [Concomitant]
     Route: 048
     Dates: start: 20051019
  78. METHYLTESTOSTER [Concomitant]
     Dates: start: 20011029
  79. PREDNISONE [Concomitant]
     Dates: start: 20010525

REACTIONS (12)
  - Lower limb fracture [Unknown]
  - Ankle fracture [Unknown]
  - Fall [Unknown]
  - Joint dislocation [Unknown]
  - Osteoporosis [Unknown]
  - Osteoarthritis [Unknown]
  - Pain [Unknown]
  - Cellulitis [Unknown]
  - Arthritis [Unknown]
  - Joint effusion [Unknown]
  - Peripheral swelling [Unknown]
  - Depression [Unknown]
